FAERS Safety Report 6527052-7 (Version None)
Quarter: 2009Q4

REPORT INFORMATION
  Report Type: 
  Country: None (occurrence: None)
  Receive Date: 20091218
  Receipt Date: 20091115
  Transmission Date: 20100525
  Serious: No
  Sender: FDA-Public Use
  Company Number: 008027

PATIENT
  Age: 59 Year
  Sex: Female
  Weight: 61.2 kg

DRUGS (1)
  1. SAMSCA [Suspect]
     Indication: BLOOD SODIUM DECREASED
     Dosage: 15 MG, DAILY DOSE, ORAL
     Route: 048
     Dates: start: 20091108

REACTIONS (2)
  - COUGH [None]
  - NASAL CONGESTION [None]
